FAERS Safety Report 9630851 (Version 1)
Quarter: 2013Q4

REPORT INFORMATION
  Report Type: Spontaneous
  Country: US (occurrence: US)
  Receive Date: 20131018
  Receipt Date: 20131018
  Transmission Date: 20140711
  Serious: Yes (Hospitalization)
  Sender: FDA-Public Use
  Company Number: US-JNJFOC-20131004130

PATIENT
  Age: 60 Year
  Sex: Female
  Weight: 83.46 kg

DRUGS (2)
  1. XARELTO [Suspect]
     Indication: THROMBOSIS PROPHYLAXIS
     Route: 048
     Dates: start: 201305, end: 201305
  2. XARELTO [Suspect]
     Indication: KNEE ARTHROPLASTY
     Route: 048
     Dates: start: 201305, end: 201305

REACTIONS (5)
  - Dyspnoea [Recovered/Resolved]
  - Heart rate increased [Recovered/Resolved]
  - Muscular weakness [Recovered/Resolved]
  - Blood count abnormal [Recovered/Resolved]
  - Oedema peripheral [Recovered/Resolved]
